FAERS Safety Report 6644002-3 (Version None)
Quarter: 2010Q1

REPORT INFORMATION
  Report Type: 
  Country: None (occurrence: None)
  Receive Date: 20100319
  Receipt Date: 20100319
  Transmission Date: 20100710
  Serious: No
  Sender: FDA-Public Use
  Company Number: None

PATIENT
  Age: 30 Year
  Sex: Female
  Weight: 70.3075 kg

DRUGS (2)
  1. RISPERDAL [Suspect]
     Indication: BIPOLAR DISORDER
     Dosage: 2MG 1X/DAILY 1MG -} 2MG (6 MOS PERIOD)
  2. RISPERDAL [Suspect]
     Indication: MANIA
     Dosage: 2MG 1X/DAILY 1MG -} 2MG (6 MOS PERIOD)

REACTIONS (1)
  - AMENORRHOEA [None]
